FAERS Safety Report 5369125-0 (Version None)
Quarter: 2007Q2

REPORT INFORMATION
  Report Type: 
  Country: None (occurrence: None)
  Receive Date: 20070625
  Receipt Date: 20070110
  Transmission Date: 20071010
  Serious: No
  Sender: FDA-Public Use
  Company Number: US-ASTRAZENECA-2007UW00534

PATIENT
  Age: 75 Year
  Sex: Female

DRUGS (2)
  1. CRESTOR [Suspect]
     Route: 048
  2. CRESTOR [Suspect]
     Route: 048

REACTIONS (1)
  - ABNORMAL DREAMS [None]
